FAERS Safety Report 5753705-4 (Version None)
Quarter: 2008Q2

REPORT INFORMATION
  Report Type: 
  Country: None (occurrence: None)
  Receive Date: 20080527
  Receipt Date: 20080521
  Transmission Date: 20081010
  Serious: Yes (Hospitalization)
  Sender: FDA-Public Use
  Company Number: 2008PL000079

PATIENT
  Age: 45 Year
  Sex: Female

DRUGS (5)
  1. AZATHIOPRINE [Suspect]
     Indication: COLITIS ULCERATIVE
     Dosage: 2.5 MG/KG;QD;PO
     Route: 048
  2. INFLIXIMAB (INFLIXIMAB) [Suspect]
     Indication: COLITIS ULCERATIVE
     Dosage: 5 MG/KG; IV
     Route: 042
  3. INFLIXIMAB (INFLIXIMAB) [Suspect]
     Indication: COLITIS ULCERATIVE
     Dosage: 5 MG/KG; IV
     Route: 042
  4. MESALAMINE [Concomitant]
  5. PREDNISONE TAB [Concomitant]

REACTIONS (6)
  - COLITIS [None]
  - DIFFUSE LARGE B-CELL LYMPHOMA [None]
  - DISEASE PROGRESSION [None]
  - DRUG INEFFECTIVE [None]
  - EPSTEIN-BARR VIRUS INFECTION [None]
  - RECTAL ULCER [None]
